FAERS Safety Report 14632232 (Version 1)
Quarter: 2018Q1

REPORT INFORMATION
  Report Type: Spontaneous
  Country: US (occurrence: US)
  Receive Date: 20180313
  Receipt Date: 20180313
  Transmission Date: 20180509
  Serious: Yes (Other)
  Sender: FDA-Public Use
  Company Number: US-BAYER-2018-047796

PATIENT
  Age: 75 Year
  Sex: Male
  Weight: 58.05 kg

DRUGS (4)
  1. BUTALBITAL W/ASPIRIN,CAFFEINE [Concomitant]
     Active Substance: ASPIRIN\BUTALBITAL\CAFFEINE
     Dosage: UNK
  2. ATIVAN [Concomitant]
     Active Substance: LORAZEPAM
     Dosage: UNK
  3. SOLARCAINE [Suspect]
     Active Substance: .ALPHA.-TOCOPHEROL\ALOE VERA LEAF\GLYCERIN\LIDOCAINE\PARABENS
     Indication: THERAPEUTIC SKIN CARE TOPICAL
     Dosage: 1 DF, UNK
     Route: 061
     Dates: start: 201802, end: 2018
  4. SOLARCAINE [Suspect]
     Active Substance: .ALPHA.-TOCOPHEROL\ALOE VERA LEAF\GLYCERIN\LIDOCAINE\PARABENS
     Indication: SKIN IRRITATION

REACTIONS (6)
  - Third degree chemical burn of skin [Recovered/Resolved]
  - Application site pain [Recovered/Resolved]
  - Application site erythema [Recovered/Resolved]
  - Drug ineffective [Unknown]
  - Skin erosion [Recovered/Resolved]
  - Application site exfoliation [Recovered/Resolved]

NARRATIVE: CASE EVENT DATE: 2018
